FAERS Safety Report 14460714 (Version 1)
Quarter: 2018Q1

REPORT INFORMATION
  Report Type: Spontaneous
  Country: TW (occurrence: TW)
  Receive Date: 20180130
  Receipt Date: 20180130
  Transmission Date: 20180509
  Serious: Yes (Other)
  Sender: FDA-Public Use
  Company Number: TW-BAUSCH-BL-2018-002505

PATIENT
  Age: 50 Year
  Sex: Female

DRUGS (1)
  1. ACICLOVIR [Suspect]
     Active Substance: ACYCLOVIR
     Indication: HERPES ZOSTER OTICUS
     Dosage: 10MG/KG Q8H
     Route: 042

REACTIONS (1)
  - Acute kidney injury [Recovered/Resolved]
